FAERS Safety Report 24120655 (Version 1)
Quarter: 2024Q3

REPORT INFORMATION
  Report Type: Other
  Country: US (occurrence: US)
  Receive Date: 20240722
  Receipt Date: 20240722
  Transmission Date: 20241016
  Serious: Yes (Hospitalization, Other)
  Sender: NUVO PHARMACEUTICALS
  Company Number: US-Nuvo Pharmaceuticals Inc-2159297

PATIENT
  Age: 80 Year
  Sex: Male

DRUGS (1)
  1. SULFASALAZINE [Suspect]
     Active Substance: SULFASALAZINE
     Indication: Colitis ulcerative
     Route: 065

REACTIONS (3)
  - Hypoxia [Recovered/Resolved]
  - Methaemoglobinaemia [Recovered/Resolved]
  - Haemolytic anaemia [Recovered/Resolved]
